FAERS Safety Report 22216106 (Version 2)
Quarter: 2023Q4

REPORT INFORMATION
  Report Type: Report from Study
  Country: CA (occurrence: CA)
  Receive Date: 20230417
  Receipt Date: 20231009
  Transmission Date: 20240110
  Serious: Yes (Other)
  Sender: FDA-Public Use
  Company Number: CA-JNJFOC-20211246564

PATIENT
  Age: 46 Year
  Sex: Female

DRUGS (2)
  1. STELARA [Suspect]
     Active Substance: USTEKINUMAB
     Indication: Crohn^s disease
     Route: 058
     Dates: start: 20151023
  2. STELARA [Suspect]
     Active Substance: USTEKINUMAB
     Dosage: THERAPY DATE: 25/OCT/2018
     Route: 058
     Dates: start: 20151113

REACTIONS (1)
  - Ingrowing nail [Recovered/Resolved]
